FAERS Safety Report 8170029-9 (Version None)
Quarter: 2012Q1

REPORT INFORMATION
  Report Type: 
  Country: None (occurrence: None)
  Receive Date: 20120110
  Receipt Date: 20110502
  Transmission Date: 20120608
  Serious: Yes (Other)
  Sender: FDA-Public Use
  Company Number: M-11-012

PATIENT
  Age: 15 Year
  Sex: Female

DRUGS (1)
  1. BUTALBITAL, ASPIRIN, AND CAFFEINE, 325/50/40 MG [Suspect]
     Dosage: ORAL (047)
     Route: 048

REACTIONS (1)
  - VERTIGO [None]
